FAERS Safety Report 24135970 (Version 1)
Quarter: 2024Q3

REPORT INFORMATION
  Report Type: Spontaneous
  Country: FR (occurrence: None)
  Receive Date: 20240725
  Receipt Date: 20240725
  Transmission Date: 20241017
  Serious: Yes (Hospitalization)
  Sender: ASTRAZENECA
  Company Number: 2024A162860

PATIENT
  Age: 81 Year
  Sex: Female
  Weight: 87.8 kg

DRUGS (15)
  1. DAPAGLIFLOZIN [Interacting]
     Active Substance: DAPAGLIFLOZIN
     Indication: Type 2 diabetes mellitus
     Dates: start: 20240620, end: 20240625
  2. COTRIMOXAZOLE [Suspect]
     Active Substance: SULFAMETHOXAZOLE\TRIMETHOPRIM
     Indication: Urinary tract infection
     Dates: start: 20240621, end: 20240625
  3. HYDROCHLOROTHIAZIDE [Interacting]
     Active Substance: HYDROCHLOROTHIAZIDE
     Indication: Hypertension
     Route: 048
     Dates: start: 20240618, end: 20240625
  4. FUROSEMIDE [Interacting]
     Active Substance: FUROSEMIDE
     Indication: Hypertension
     Route: 048
     Dates: end: 20240625
  5. FEBUXOSTAT [Concomitant]
     Active Substance: FEBUXOSTAT
  6. FOLIC ACID [Concomitant]
     Active Substance: FOLIC ACID
  7. URAPIDIL [Concomitant]
     Active Substance: URAPIDIL
  8. URAPIDIL [Concomitant]
     Active Substance: URAPIDIL
  9. NICARDIPINE [Concomitant]
     Active Substance: NICARDIPINE
  10. AMLODIPINE [Concomitant]
     Active Substance: AMLODIPINE BESYLATE
  11. LYRICA [Concomitant]
     Active Substance: PREGABALIN
  12. CHOLECALCIFEROL [Concomitant]
     Active Substance: CHOLECALCIFEROL
  13. KARDEGIC [Concomitant]
     Active Substance: ASPIRIN DL-LYSINE
  14. INDAPAMIDE [Concomitant]
     Active Substance: INDAPAMIDE
     Dates: end: 20240618
  15. ATORVASTATIN [Concomitant]
     Active Substance: ATORVASTATIN

REACTIONS (2)
  - Drug interaction [Recovered/Resolved]
  - Acute kidney injury [Recovered/Resolved]

NARRATIVE: CASE EVENT DATE: 20240625
